FAERS Safety Report 4696215-8 (Version None)
Quarter: 2005Q2

REPORT INFORMATION
  Report Type: 
  Country: None (occurrence: None)
  Receive Date: 20050621
  Receipt Date: 20041122
  Transmission Date: 20051028
  Serious: Yes (Hospitalization)
  Sender: FDA-Public Use
  Company Number: 2004CG02335

PATIENT
  Age: 58 Year
  Sex: Female

DRUGS (6)
  1. ARIMIDEX [Suspect]
     Indication: BREAST CANCER
     Route: 048
     Dates: start: 20040802, end: 20040922
  2. FLUOROURACIL [Concomitant]
     Indication: BREAST CANCER
     Route: 042
     Dates: start: 20040401, end: 20040801
  3. CYCLOPHOSPHAMIDE [Concomitant]
     Indication: BREAST CANCER
     Route: 042
     Dates: start: 20040401, end: 20040801
  4. EPIRUBICIN [Concomitant]
     Indication: BREAST CANCER
     Route: 042
     Dates: start: 20040401, end: 20040801
  5. FLORADIX [Concomitant]
     Dates: start: 20040815, end: 20040830
  6. ACETAMINOPHEN [Concomitant]
     Route: 048
     Dates: start: 20040913, end: 20040920

REACTIONS (1)
  - THROMBOCYTOPENIA [None]
